FAERS Safety Report 5155595-X (Version None)
Quarter: 2006Q4

REPORT INFORMATION
  Report Type: 
  Country: None (occurrence: None)
  Receive Date: 20061113
  Receipt Date: 20060328
  Transmission Date: 20070319
  Serious: No
  Sender: FDA-Public Use
  Company Number: US017213

PATIENT
  Sex: Male

DRUGS (5)
  1. TRISENOX [Suspect]
  2. ASCORBIC ACID [Suspect]
  3. METHOTREXATE [Suspect]
  4. ADRIAMYCIN PFS [Suspect]
  5. CYCLOPHOSPHAMIDE [Suspect]

REACTIONS (1)
  - VISION BLURRED [None]
